FAERS Safety Report 9239378 (Version 1)
Quarter: 2013Q2

REPORT INFORMATION
  Report Type: Spontaneous
  Country: BR (occurrence: BR)
  Receive Date: 20130418
  Receipt Date: 20130418
  Transmission Date: 20140414
  Serious: Yes (Other)
  Sender: FDA-Public Use
  Company Number: BR-PFIZER INC-2013117311

PATIENT
  Age: 83 Year
  Sex: Female

DRUGS (7)
  1. PANTOPRAZOLE [Suspect]
     Indication: GASTRITIS
     Dosage: 150 MG, DAILY
     Route: 065
  2. FLUOXETINE HCL [Suspect]
     Indication: DEPRESSION
     Dosage: 20 MG, DAILY
     Route: 065
  3. APRESOLINE [Suspect]
     Dosage: 25 MG, 2X/DAY
     Route: 048
  4. APRESOLINE [Suspect]
     Dosage: 50 MG, 4X/DAY
     Route: 065
  5. VALSARTAN [Suspect]
     Dosage: 80 MG, 2X/DAY
     Route: 048
  6. SIMVASTATIN [Suspect]
     Indication: BLOOD CHOLESTEROL INCREASED
     Dosage: 20 MG, DAILY
     Route: 065
  7. ANTAK [Suspect]
     Indication: GASTRITIS
     Dosage: 3 DF, 3X/DAY
     Route: 048

REACTIONS (7)
  - Gastritis [Unknown]
  - Blood cholesterol increased [Unknown]
  - Vision blurred [Recovered/Resolved]
  - Diarrhoea [Recovered/Resolved]
  - Depression [Unknown]
  - Drug intolerance [Unknown]
  - Incorrect dose administered [Unknown]
